FAERS Safety Report 23079771 (Version 1)
Quarter: 2023Q4

REPORT INFORMATION
  Report Type: Spontaneous
  Country: KR (occurrence: KR)
  Receive Date: 20231018
  Receipt Date: 20231018
  Transmission Date: 20240110
  Serious: No
  Sender: FDA-Public Use
  Company Number: KR-PFIZER INC-PV202300170967

PATIENT

DRUGS (1)
  1. PAXLOVID [Suspect]
     Active Substance: NIRMATRELVIR\RITONAVIR
     Indication: COVID-19 treatment
     Dosage: [NIRMATRELVIR,300 MG]/[RITONAVIR 100 MG]; 2X/DAY(EVERY 12 HOURS)
     Route: 048

REACTIONS (1)
  - Wrong patient received product [Unknown]
